FAERS Safety Report 8129300-9 (Version None)
Quarter: 2011Q4

REPORT INFORMATION
  Report Type: 
  Country: None (occurrence: None)
  Receive Date: 20111227
  Receipt Date: 20110927
  Transmission Date: 20120403
  Serious: No
  Sender: FDA-Public Use
  Company Number: PHHY2011US56608

PATIENT
  Age: 57 Year
  Sex: Female

DRUGS (6)
  1. BACLOFEN [Concomitant]
  2. SERTRALINE (SERTRALINE), 50 MG [Concomitant]
  3. NORTRIPTYLINE HCL [Concomitant]
  4. GILENYA [Suspect]
     Indication: RELAPSING-REMITTING MULTIPLE SCLEROSIS
     Dosage: 0.5 MG, QD, ORAL
     Route: 048
     Dates: start: 20110609
  5. TASDINE [Concomitant]
  6. NOROTIN [Concomitant]

REACTIONS (6)
  - HYPERSOMNIA [None]
  - IRRITABILITY [None]
  - DIZZINESS [None]
  - BACK PAIN [None]
  - WEIGHT INCREASED [None]
  - FATIGUE [None]
